FAERS Safety Report 21397031 (Version 1)
Quarter: 2022Q3

REPORT INFORMATION
  Report Type: Spontaneous
  Country: US (occurrence: US)
  Receive Date: 20220930
  Receipt Date: 20220930
  Transmission Date: 20221027
  Serious: No
  Sender: FDA-Public Use
  Company Number: US-LUPIN PHARMACEUTICALS INC.-2022-11460

PATIENT
  Age: 19 Year
  Sex: Female

DRUGS (8)
  1. DULOXETINE [Suspect]
     Active Substance: DULOXETINE
     Indication: Orthostatic intolerance
     Dosage: 30 MG DELAYED RELEASE
     Route: 065
  2. CLONIDINE [Suspect]
     Active Substance: CLONIDINE
     Indication: Orthostatic intolerance
     Dosage: 1 MG, QD EVERY EVENING
     Route: 065
  3. FLUDROCORTISONE [Suspect]
     Active Substance: FLUDROCORTISONE
     Indication: Orthostatic intolerance
     Dosage: 1 MG, QD
     Route: 065
  4. PROPRANOLOL [Suspect]
     Active Substance: PROPRANOLOL HYDROCHLORIDE
     Indication: Orthostatic intolerance
     Dosage: 5 MG, QD EVERY EVENING
     Route: 065
  5. IVABRADINE [Suspect]
     Active Substance: IVABRADINE
     Indication: Orthostatic intolerance
     Dosage: 2.5 MG, QD FOR SEVERAL WEEKS
     Route: 065
  6. PYRIDOSTIGMINE BROMIDE [Suspect]
     Active Substance: PYRIDOSTIGMINE BROMIDE
     Indication: Orthostatic intolerance
     Dosage: 60 MG, TID
     Route: 065
  7. MIDODRINE [Concomitant]
     Active Substance: MIDODRINE
     Indication: Orthostatic intolerance
     Dosage: UNK UNK, TID (2.5-10MG)
     Route: 065
  8. SODIUM CHLORIDE [Concomitant]
     Active Substance: SODIUM CHLORIDE
     Indication: Orthostatic intolerance
     Dosage: 1 LITER ON AND OFF FOR 5 YEARS
     Route: 065

REACTIONS (5)
  - Fatigue [Recovering/Resolving]
  - Hypotension [Recovering/Resolving]
  - Dizziness [Recovering/Resolving]
  - Drug ineffective for unapproved indication [Unknown]
  - Off label use [Unknown]
